FAERS Safety Report 6269979-X (Version None)
Quarter: 2009Q3

REPORT INFORMATION
  Report Type: 
  Country: None (occurrence: None)
  Receive Date: 20090714
  Receipt Date: 20090630
  Transmission Date: 20100115
  Serious: Yes (Other)
  Sender: FDA-Public Use
  Company Number: 1000007292

PATIENT
  Age: 19 Year
  Sex: Female

DRUGS (2)
  1. ESCITALOPRAM [Suspect]
     Indication: ANXIETY
     Dates: start: 20090401, end: 20090101
  2. ESCITALOPRAM [Suspect]
     Indication: DEPRESSION
     Dates: start: 20090401, end: 20090101

REACTIONS (2)
  - HAEMATOCHEZIA [None]
  - LARGE INTESTINAL HAEMORRHAGE [None]
